FAERS Safety Report 8617746-1 (Version None)
Quarter: 2012Q3

REPORT INFORMATION
  Report Type: 
  Country: None (occurrence: None)
  Receive Date: 20120824
  Receipt Date: 20120213
  Transmission Date: 20120928
  Serious: No
  Sender: FDA-Public Use
  Company Number: US-ASTRAZENECA-2012SE03660

PATIENT
  Age: 80 Year
  Sex: Female
  Weight: 54.4 kg

DRUGS (5)
  1. SYMBICORT [Suspect]
     Dosage: TWO PUFFS TWICE A DAY
     Route: 055
     Dates: start: 20120117
  2. COMBIVENT [Concomitant]
  3. SYMBICORT [Suspect]
     Indication: CHRONIC OBSTRUCTIVE PULMONARY DISEASE
     Dosage: 160/4.5, TWO PUFFS TWICE A DAY
     Route: 055
     Dates: start: 20110814, end: 20110930
  4. SYMBICORT [Suspect]
     Dosage: 80/4.5, 2 PUFFS, BID
     Route: 055
     Dates: start: 20110930, end: 20111215
  5. VENTOLIN [Concomitant]

REACTIONS (2)
  - MUSCLE SPASMS [None]
  - NOCTURNAL DYSPNOEA [None]
